FAERS Safety Report 22325987 (Version 3)
Quarter: 2023Q2

REPORT INFORMATION
  Report Type: Report from Study
  Country: DE (occurrence: DE)
  Receive Date: 20230516
  Receipt Date: 20230525
  Transmission Date: 20230721
  Serious: Yes (Death, Hospitalization, Other)
  Sender: FDA-Public Use
  Company Number: DE-ROCHE-3344721

PATIENT
  Age: 60 Year
  Sex: Female
  Weight: 72.5 kg

DRUGS (33)
  1. BEVACIZUMAB [Suspect]
     Active Substance: BEVACIZUMAB
     Indication: Neoplasm malignant
     Dosage: 350 MG, EVERY 2 WEEKS, DATE OF MOST RECENT DOSE PRIOR TO AE/SAE ONSET: 01/FEB/2023
     Route: 042
     Dates: start: 20221102, end: 20230201
  2. LEUCOVORIN CALCIUM [Suspect]
     Active Substance: LEUCOVORIN CALCIUM
     Indication: Neoplasm
     Dosage: EVERY 2 WEEKS
     Route: 042
     Dates: start: 20230201
  3. LEUCOVORIN [Suspect]
     Active Substance: LEUCOVORIN
     Indication: Neoplasm malignant
     Dosage: 692 MG, EVERY TWO WEEKS, DATE OF MOST RECENT DOSE PRIOR TO AE/SAE ONSET: 01/FEB/2023
     Route: 042
     Dates: start: 20221102, end: 20230201
  4. IRINOTECAN [Suspect]
     Active Substance: IRINOTECAN
     Indication: Neoplasm malignant
     Dosage: 187 MG, EVERY 2 WEEKS
     Route: 042
     Dates: start: 20221102, end: 20230201
  5. IRINOTECAN [Suspect]
     Active Substance: IRINOTECAN
     Dosage: EVERY 2 WEEKS
     Dates: start: 20230201
  6. FLUOROURACIL [Suspect]
     Active Substance: FLUOROURACIL
     Indication: Neoplasm malignant
     Dosage: 2076 MG, EVERY TWO WEEKS, DATE OF MOST RECENT DOSE OF PRIOR TO AE/SAE ONSET: 01/02/2023
     Route: 042
     Dates: start: 20221102, end: 20230201
  7. LOPERAMIDE [Concomitant]
     Active Substance: LOPERAMIDE
     Dosage: UNK
  8. FERROUS SULFATE [Concomitant]
     Active Substance: FERROUS SULFATE
     Dosage: UNK
  9. ELIQUIS [Concomitant]
     Active Substance: APIXABAN
     Dosage: UNK
  10. ATORVASTATIN [Concomitant]
     Active Substance: ATORVASTATIN
     Dosage: UNK
  11. ONDANSETRON [Concomitant]
     Active Substance: ONDANSETRON
     Dosage: UNK
  12. METOCLOPRAMIDE [Concomitant]
     Active Substance: METOCLOPRAMIDE
     Dosage: UNK
  13. PANTOPRAZOLE SODIUM [Concomitant]
     Active Substance: PANTOPRAZOLE SODIUM
     Dosage: UNK
  14. FUROSEMIDE [Concomitant]
     Active Substance: FUROSEMIDE
     Dosage: UNK
  15. CANDESARTAN [Concomitant]
     Active Substance: CANDESARTAN
     Dosage: UNK
  16. CITALOPRAM [Concomitant]
     Active Substance: CITALOPRAM HYDROBROMIDE
     Dosage: UNK
  17. CHOLECALCIFEROL [Concomitant]
     Active Substance: CHOLECALCIFEROL
     Dosage: UNK
  18. LERCANIDIPINE [Concomitant]
     Active Substance: LERCANIDIPINE
     Dosage: UNK
  19. METAMIZOLE [Concomitant]
     Active Substance: METAMIZOLE
     Dosage: UNK
  20. POTASSIUM [Concomitant]
     Active Substance: POTASSIUM
     Indication: Blood potassium increased
     Dosage: 20 MMOL, 3X/DAY
     Dates: start: 20230213, end: 20230214
  21. MORPHINE [Concomitant]
     Active Substance: MORPHINE
     Indication: Pain
     Dosage: 50 MG
     Dates: start: 20230314, end: 20230317
  22. NALOXONE [Concomitant]
     Active Substance: NALOXONE
     Indication: Pain
     Dosage: 2.5 MG, 2X/DAY
     Dates: start: 20230304, end: 20230307
  23. FENTANYL [Concomitant]
     Active Substance: FENTANYL
     Indication: Pain
     Dosage: 25 G,  3X/WEEK
     Dates: start: 20230306, end: 20230312
  24. OLIMEL PERIFER N4E [Concomitant]
     Dosage: UNK
     Dates: start: 20230210, end: 20230317
  25. PROTAPHANE [Concomitant]
     Active Substance: INSULIN HUMAN
     Indication: Diabetes mellitus
     Dosage: 100 IU
     Dates: start: 20230315
  26. OXYCODONE [Concomitant]
     Active Substance: OXYCODONE
     Indication: Pain
     Dosage: 5 MG
     Dates: start: 20230304, end: 20230308
  27. HEPARIN SODIUM [Concomitant]
     Active Substance: HEPARIN SODIUM
     Dosage: 5000 IU, 2X/DAY
     Dates: start: 20230210, end: 20230317
  28. SPIRONOLACTONE [Concomitant]
     Active Substance: SPIRONOLACTONE
     Dosage: 12.5 MG, 1X/DAY
     Dates: start: 20221223, end: 20230317
  29. AMPHOTERICIN B [Concomitant]
     Active Substance: AMPHOTERICIN B
     Dosage: 50 MG, 1X/DAY
     Dates: start: 20230214
  30. LANTUS [Concomitant]
     Active Substance: INSULIN GLARGINE
     Indication: Diabetes mellitus
     Dosage: 100 IU PEN
     Dates: end: 20230317
  31. FENTANYL CITRATE [Concomitant]
     Active Substance: FENTANYL CITRATE
     Indication: Pain
     Dosage: 100 MG
     Dates: start: 20230306, end: 20230317
  32. ALBUMIN HUMAN [Concomitant]
     Active Substance: ALBUMIN HUMAN
     Dosage: UNK
     Dates: start: 20230217, end: 20230310
  33. DIMENHYDRINATE [Concomitant]
     Active Substance: DIMENHYDRINATE
     Indication: Nausea
     Dosage: 6.2 MG/ML
     Dates: start: 20230304, end: 20230316

REACTIONS (2)
  - Sepsis [Fatal]
  - Neoplasm progression [Fatal]

NARRATIVE: CASE EVENT DATE: 20230210
